FAERS Safety Report 10082822 (Version 1)
Quarter: 2014Q2

REPORT INFORMATION
  Report Type: Spontaneous
  Country: US (occurrence: US)
  Receive Date: 20140416
  Receipt Date: 20140416
  Transmission Date: 20141212
  Serious: No
  Sender: FDA-Public Use
  Company Number: US-009507513-1403USA006073

PATIENT
  Age: 43 Year
  Sex: Female
  Weight: 59.86 kg

DRUGS (1)
  1. CLARITIN ORAL SOLUTION [Suspect]
     Indication: DERMATITIS CONTACT
     Dosage: 2.5 MG, ONCE
     Route: 048
     Dates: start: 20140304, end: 20140304

REACTIONS (6)
  - Paraesthesia oral [Recovering/Resolving]
  - Somnolence [Recovering/Resolving]
  - Feeling hot [Recovering/Resolving]
  - Unevaluable event [Recovering/Resolving]
  - Underdose [Unknown]
  - Off label use [Unknown]
